FAERS Safety Report 9597806 (Version 1)
Quarter: 2013Q4

REPORT INFORMATION
  Report Type: Spontaneous
  Country: US (occurrence: US)
  Receive Date: 20131004
  Receipt Date: 20131004
  Transmission Date: 20140711
  Serious: No
  Sender: FDA-Public Use
  Company Number: US-AMGEN-USASP2013021141

PATIENT
  Age: 49 Year
  Sex: Female
  Weight: 88.44 kg

DRUGS (3)
  1. ENBREL [Suspect]
     Indication: PRODUCT USED FOR UNKNOWN INDICATION
     Dosage: 50 MG, 2 TIMES/WK
     Route: 058
     Dates: start: 2005, end: 2007
  2. VICODIN [Concomitant]
     Dosage: 500 MG, UNK
  3. LISINOPRIL [Concomitant]
     Dosage: 5 MG, UNK

REACTIONS (2)
  - Drug ineffective [Unknown]
  - Psoriasis [Unknown]
